FAERS Safety Report 8286064-6 (Version None)
Quarter: 2012Q2

REPORT INFORMATION
  Report Type: 
  Country: None (occurrence: None)
  Receive Date: 20120416
  Receipt Date: 20120405
  Transmission Date: 20120825
  Serious: No
  Sender: FDA-Public Use
  Company Number: US-BIOGENIDEC-2012BI002027

PATIENT
  Age: 51 Year
  Sex: Female

DRUGS (1)
  1. TYSABRI [Suspect]
     Indication: MULTIPLE SCLEROSIS
     Route: 042
     Dates: start: 20110328

REACTIONS (5)
  - MUSCULAR WEAKNESS [None]
  - HYPOAESTHESIA [None]
  - COORDINATION ABNORMAL [None]
  - MOBILITY DECREASED [None]
  - HYPERSOMNIA [None]
